FAERS Safety Report 7994968-4 (Version None)
Quarter: 2011Q4

REPORT INFORMATION
  Report Type: 
  Country: None (occurrence: None)
  Receive Date: 20111220
  Receipt Date: 20111122
  Transmission Date: 20120403
  Serious: No
  Sender: FDA-Public Use
  Company Number: US-MYLANLABS-2011S1021183

PATIENT
  Age: 55 Year
  Sex: Female

DRUGS (6)
  1. VITAMIN D [Concomitant]
  2. CALCIUM [Concomitant]
  3. L-GLUTAMINE /00503401/ [Concomitant]
  4. VITAMIN B-12 [Concomitant]
  5. VITAMIN C [Concomitant]
  6. LETROZOLE [Suspect]
     Indication: BREAST CANCER
     Route: 048
     Dates: start: 20110831

REACTIONS (4)
  - HEADACHE [None]
  - POOR PERIPHERAL CIRCULATION [None]
  - FATIGUE [None]
  - PAIN IN EXTREMITY [None]
